FAERS Safety Report 7415930-6 (Version None)
Quarter: 2011Q2

REPORT INFORMATION
  Report Type: 
  Country: None (occurrence: None)
  Receive Date: 20110414
  Receipt Date: 20110404
  Transmission Date: 20111010
  Serious: Yes (Other)
  Sender: FDA-Public Use
  Company Number: PHHY2011US28370

PATIENT
  Age: 49 Year
  Sex: Male

DRUGS (4)
  1. VANCOMYCIN [Suspect]
     Dosage: UNK UKN, UNK
  2. PIPERACILLIN AND TAZOBACTAM [Suspect]
     Dosage: UNK UKN, UNK
  3. FUROSEMIDE [Suspect]
     Dosage: UNK UKN, UNK
  4. SULFAMETTHOXAZOLE AND TRIMETHOPRIM [Suspect]
     Dosage: UNK UKN, UNK

REACTIONS (6)
  - SKIN EROSION [None]
  - PNEUMONIA STAPHYLOCOCCAL [None]
  - PYREXIA [None]
  - BLISTER [None]
  - BRUXISM [None]
  - DERMATITIS EXFOLIATIVE [None]
